FAERS Safety Report 20539136 (Version 4)
Quarter: 2022Q2

REPORT INFORMATION
  Report Type: Report from Study
  Country: AT (occurrence: AT)
  Receive Date: 20220302
  Receipt Date: 20220627
  Transmission Date: 20220721
  Serious: Yes (Other)
  Sender: FDA-Public Use
  Company Number: AT-CELLTRION INC.-2022AT002142

PATIENT

DRUGS (49)
  1. TRASTUZUMAB [Suspect]
     Active Substance: TRASTUZUMAB
     Indication: HER2 positive breast cancer
     Dosage: 6 MG/KG, EVERY 3 WEEKS
     Route: 041
     Dates: start: 20190724, end: 20190912
  2. CAPECITABINE [Suspect]
     Active Substance: CAPECITABINE
     Indication: HER2 positive breast cancer
     Dosage: 500 MG
     Route: 048
     Dates: start: 20200923, end: 20201220
  3. CAPECITABINE [Suspect]
     Active Substance: CAPECITABINE
     Dosage: 500 MG, 4/DAY
     Route: 048
     Dates: start: 20210109, end: 20211209
  4. PERTUZUMAB [Suspect]
     Active Substance: PERTUZUMAB
     Indication: HER2 positive breast cancer
     Dosage: 420 MG, EVERY 3 WEEKS
     Route: 042
     Dates: start: 20190724, end: 20190912
  5. ADO-TRASTUZUMAB EMTANSINE [Suspect]
     Active Substance: ADO-TRASTUZUMAB EMTANSINE
     Indication: HER2 positive breast cancer
     Dosage: 3.6 MG/KG, EVERY 3 WEEKS
     Route: 042
     Dates: start: 20191014, end: 20200518
  6. ADO-TRASTUZUMAB EMTANSINE [Suspect]
     Active Substance: ADO-TRASTUZUMAB EMTANSINE
     Dosage: 2.88 MG/KG, EVERY 3 WEEKS
     Route: 042
     Dates: start: 20200703, end: 20200703
  7. FAM-TRASTUZUMAB DERUXTECAN-NXKI [Suspect]
     Active Substance: FAM-TRASTUZUMAB DERUXTECAN-NXKI
     Indication: HER2 positive breast cancer
     Dosage: 5.4 MG/KG, EVERY 3 WEEKS, MOST RECENT DOSE PRIOR TO AE 31/JAN/2022
     Route: 041
     Dates: start: 20220110
  8. PACLITAXEL [Suspect]
     Active Substance: PACLITAXEL
     Indication: HER2 positive breast cancer
     Dosage: 260 MG/M2, EVERY 3 WEEKS
     Route: 042
     Dates: start: 20190724, end: 20190912
  9. LAPATINIB [Suspect]
     Active Substance: LAPATINIB
     Indication: HER2 positive breast cancer
     Dosage: MOST RECENT DOSE PRIOR TO THE EVENT: 09/JAN/2021
     Route: 048
     Dates: start: 20200923, end: 20201228
  10. LAPATINIB [Suspect]
     Active Substance: LAPATINIB
     Dosage: 250 MG, 0.25/DAY
     Route: 048
     Dates: start: 20210109, end: 20211216
  11. CALCIDURAN [ASCORBIC ACID;CALCIUM PHOSPHATE;CITRIC ACID;COLECALCIFEROL [Concomitant]
     Dosage: ONGOING = CHECKED
     Route: 048
     Dates: start: 20190717
  12. HYDROMORPHONE HYDROCHLORIDE [Concomitant]
     Active Substance: HYDROMORPHONE HYDROCHLORIDE
     Dosage: 2 MG, 0.5/ DAY
     Route: 048
     Dates: start: 20190716, end: 20200927
  13. HYDROMORPHONE HYDROCHLORIDE [Concomitant]
     Active Substance: HYDROMORPHONE HYDROCHLORIDE
     Dosage: 2 MG, 0.5/ DAY
     Route: 048
     Dates: start: 20220207
  14. HYDROMORPHONE HYDROCHLORIDE [Concomitant]
     Active Substance: HYDROMORPHONE HYDROCHLORIDE
     Dosage: 1.3 MG, PRN
     Route: 048
     Dates: start: 20190716
  15. OLANZAPINE [Concomitant]
     Active Substance: OLANZAPINE
     Dosage: 10MG (OTHER 0-0-1/2)
     Route: 048
     Dates: start: 20190904, end: 20200926
  16. OLANZAPINE [Concomitant]
     Active Substance: OLANZAPINE
     Dosage: 10MG (OTHER 0-0-1/2)
     Route: 048
     Dates: start: 20190821, end: 20190904
  17. DEXAMETHASONE [Concomitant]
     Active Substance: DEXAMETHASONE
     Indication: COVID-19
     Dosage: 8 MG, EVERY 3 WEEKS
     Route: 042
     Dates: start: 20220110
  18. DEXAMETHASONE [Concomitant]
     Active Substance: DEXAMETHASONE
     Dosage: 6 MG, 1 PER DAY
     Route: 048
     Dates: start: 20210302, end: 20210304
  19. DEXAMETHASONE [Concomitant]
     Active Substance: DEXAMETHASONE
     Dosage: 8 MG
     Route: 042
     Dates: start: 20190704, end: 20190912
  20. DEXAMETHASONE [Concomitant]
     Active Substance: DEXAMETHASONE
     Dosage: 8 MG
     Route: 048
     Dates: start: 20190705, end: 20190914
  21. DEXAMETHASONE [Concomitant]
     Active Substance: DEXAMETHASONE
     Dosage: UNK
     Dates: start: 20220113, end: 20220114
  22. DEXAMETHASONE [Concomitant]
     Active Substance: DEXAMETHASONE
     Dosage: UNK
     Dates: start: 20220111, end: 20220112
  23. DEXAMETHASONE [Concomitant]
     Active Substance: DEXAMETHASONE
     Dosage: UNK
     Dates: start: 20220124, end: 20220323
  24. LENDORM [Concomitant]
     Active Substance: BROTIZOLAM
     Indication: Insomnia
     Dosage: 0.25 MG, PRN
     Route: 048
     Dates: start: 20211229
  25. TRAZODONE HYDROCHLORIDE [Concomitant]
     Active Substance: TRAZODONE HYDROCHLORIDE
     Dosage: 150 MG, 1/DAY
     Route: 048
     Dates: start: 20190716, end: 20200926
  26. POLYETHYLENE GLYCOL 4000 [Concomitant]
     Active Substance: POLYETHYLENE GLYCOL 4000
     Dosage: 10G (EVERY 3 DAYS) ONGOING = CHECKED
     Route: 048
     Dates: start: 20190705
  27. ZOFRAN [Concomitant]
     Active Substance: ONDANSETRON HYDROCHLORIDE
     Indication: COVID-19
     Dosage: 8 MG, PRN
     Route: 048
     Dates: start: 20190701
  28. ZOFRAN [Concomitant]
     Active Substance: ONDANSETRON HYDROCHLORIDE
     Dosage: 8 MG, PRN
     Route: 042
     Dates: start: 20190704, end: 20200703
  29. ZOFRAN [Concomitant]
     Active Substance: ONDANSETRON HYDROCHLORIDE
     Dosage: 8 MG,  0.5/DAY
     Route: 067
     Dates: start: 20190705, end: 20190914
  30. ZOFRAN [Concomitant]
     Active Substance: ONDANSETRON HYDROCHLORIDE
     Dosage: 4 MG, QD
     Route: 048
     Dates: start: 20210302, end: 20210302
  31. ZOFRAN [Concomitant]
     Active Substance: ONDANSETRON HYDROCHLORIDE
     Dosage: 8 MG, 3/WEEK (ONGOING=CHECKED)
     Route: 042
     Dates: start: 20220110
  32. SUCRALAN [Concomitant]
     Dosage: 1 G, PRN
     Route: 048
     Dates: start: 20190701
  33. AMOXICILLIN\CLAVULANATE POTASSIUM [Concomitant]
     Active Substance: AMOXICILLIN\CLAVULANATE POTASSIUM
     Indication: Influenza
     Dosage: 875 MG, 0.5/ DAY
     Route: 048
     Dates: start: 20200527, end: 20200602
  34. ACETAMINOPHEN [Concomitant]
     Active Substance: ACETAMINOPHEN
     Dosage: 500 MG, PRN
     Route: 048
     Dates: start: 20190701
  35. DRONABINOL [Concomitant]
     Active Substance: DRONABINOL
     Dosage: 2.5% (2 DROP-2 DROP-2 DROP)
     Route: 048
     Dates: start: 20190716, end: 20210804
  36. DRONABINOL [Concomitant]
     Active Substance: DRONABINOL
     Dosage: 2.5% (ONGOING = CHECKED)
     Route: 048
     Dates: start: 20210705
  37. CITALOPRAM [Concomitant]
     Active Substance: CITALOPRAM HYDROBROMIDE
     Dosage: ONGOING = CHECKED
     Route: 048
     Dates: start: 20190715
  38. CEOLAT [Concomitant]
     Dosage: OTHER UP TO 3 X DAILY 10 ML
     Route: 048
     Dates: start: 20190815
  39. ENTEROBENE [Concomitant]
     Indication: Diarrhoea
     Dosage: PRN
     Route: 048
     Dates: start: 20210215
  40. NEURONTIN [Concomitant]
     Active Substance: GABAPENTIN
     Dosage: 300 MG, 0.5/ DAY
     Route: 048
     Dates: start: 201908, end: 201908
  41. ALPRAZOLAM [Concomitant]
     Active Substance: ALPRAZOLAM
     Dosage: 0.5 MG, PRN
     Route: 048
     Dates: start: 20190715
  42. VALACYCLOVIR HYDROCHLORIDE [Concomitant]
     Active Substance: VALACYCLOVIR HYDROCHLORIDE
     Dosage: 500 MG, 1/DAY
     Route: 048
     Dates: start: 20190716, end: 20191011
  43. PANTOPRAZOLE SODIUM [Concomitant]
     Active Substance: PANTOPRAZOLE SODIUM
     Indication: COVID-19
     Dosage: 40MG (ONGOING = CHECKED)
     Route: 048
     Dates: start: 20190701
  44. PANTOPRAZOLE SODIUM [Concomitant]
     Active Substance: PANTOPRAZOLE SODIUM
     Dosage: 40MG, 1/DAY (ONGOING = CHECKED)
     Route: 048
     Dates: start: 20210222, end: 20210302
  45. EUTHYROX [Concomitant]
     Active Substance: LEVOTHYROXINE SODIUM
     Dosage: 50 MICROGRAM, 1 PER DAY
     Route: 048
     Dates: start: 20190703, end: 20200929
  46. EUTHYROX [Concomitant]
     Active Substance: LEVOTHYROXINE SODIUM
     Dosage: 75 MICROGRAM, 1 PER DAY
     Route: 048
     Dates: start: 201906
  47. EUTHYROX [Concomitant]
     Active Substance: LEVOTHYROXINE SODIUM
     Dosage: 25 MICROGRAM, 1 PER DAY
     Route: 048
     Dates: start: 20200930, end: 20210108
  48. LOVENOX [Concomitant]
     Active Substance: ENOXAPARIN SODIUM
     Indication: COVID-19
     Dosage: 40 MG, 1/DAY
     Route: 030
     Dates: start: 20210302, end: 20210305
  49. ACETAMINOPHEN [Concomitant]
     Active Substance: ACETAMINOPHEN
     Indication: COVID-19
     Dosage: 1 G, PRN (AS NEEDED)
     Route: 048
     Dates: start: 20210302, end: 20210303

REACTIONS (4)
  - Intracranial pressure increased [Not Recovered/Not Resolved]
  - Iron deficiency anaemia [Recovered/Resolved]
  - Gamma-glutamyltransferase increased [Not Recovered/Not Resolved]
  - Insomnia [Not Recovered/Not Resolved]

NARRATIVE: CASE EVENT DATE: 20211227
